FAERS Safety Report 7088473-X (Version None)
Quarter: 2010Q4

REPORT INFORMATION
  Report Type: 
  Country: None (occurrence: None)
  Receive Date: 20101108
  Receipt Date: 20101102
  Transmission Date: 20110411
  Serious: Yes (Other)
  Sender: FDA-Public Use
  Company Number: JP-PFIZER INC-2010126265

PATIENT
  Sex: Female

DRUGS (3)
  1. LYRICA [Suspect]
     Indication: POST HERPETIC NEURALGIA
     Dosage: 150MG/DAY
     Route: 048
     Dates: start: 20100628, end: 20100901
  2. HORIZON [Concomitant]
     Dosage: UNK
     Route: 048
     Dates: start: 20100401
  3. TEGRETOL [Concomitant]
     Dosage: UNK
     Route: 048
     Dates: start: 20100401

REACTIONS (1)
  - DERMATITIS BULLOUS [None]
